FAERS Safety Report 23815404 (Version 2)
Quarter: 2024Q2

REPORT INFORMATION
  Report Type: Spontaneous
  Country: US (occurrence: US)
  Receive Date: 20240503
  Receipt Date: 20240514
  Transmission Date: 20240716
  Serious: No
  Sender: FDA-Public Use
  Company Number: US-TAIHOP-2024-004452

PATIENT
  Age: 38 Year
  Sex: Male

DRUGS (1)
  1. LONSURF [Suspect]
     Active Substance: TIPIRACIL HYDROCHLORIDE\TRIFLURIDINE
     Indication: Colorectal cancer
     Dosage: DOSE, FREQUENCY, STRENGTH AND CYCLE UNKNOWN
     Route: 048

REACTIONS (3)
  - Abdominal pain upper [Unknown]
  - Incorrect dose administered [Unknown]
  - Product communication issue [Unknown]
